FAERS Safety Report 9002063 (Version 2)
Quarter: 2013Q1

REPORT INFORMATION
  Report Type: Spontaneous
  Country: US (occurrence: US)
  Receive Date: 20130107
  Receipt Date: 20130110
  Transmission Date: 20140127
  Serious: Yes (Hospitalization)
  Sender: FDA-Public Use
  Company Number: US-AMGEN-USASP2013000198

PATIENT
  Age: 42 Year
  Sex: Female
  Weight: 63.49 kg

DRUGS (3)
  1. ENBREL [Suspect]
     Indication: PSORIATIC ARTHROPATHY
     Dosage: 50 MG, QWK
     Route: 058
     Dates: start: 2009
  2. METHOTREXATE [Concomitant]
     Dosage: 12.56 MG, QWK
     Route: 058
     Dates: start: 2009
  3. NAPROXEN [Concomitant]
     Dosage: 50 MG, QD OR BID
     Route: 048

REACTIONS (1)
  - Dysfunctional uterine bleeding [Unknown]
